FAERS Safety Report 25191973 (Version 1)
Quarter: 2025Q2

REPORT INFORMATION
  Report Type: Spontaneous
  Country: US (occurrence: US)
  Receive Date: 20250414
  Receipt Date: 20250414
  Transmission Date: 20250716
  Serious: Yes (Other)
  Sender: AMGEN
  Company Number: US-AMGEN-USASP2025069510

PATIENT

DRUGS (1)
  1. BEVACIZUMAB [Suspect]
     Active Substance: BEVACIZUMAB
     Indication: Ovarian cancer
     Route: 065

REACTIONS (12)
  - Keratopathy [Unknown]
  - Respiratory distress [Unknown]
  - Ovarian cancer [Unknown]
  - Cardio-respiratory arrest [Unknown]
  - Pneumonitis [Unknown]
  - Neuropathy peripheral [Unknown]
  - Thrombocytopenia [Unknown]
  - Paraesthesia [Unknown]
  - Myopathy [Unknown]
  - Dry eye [Unknown]
  - Infusion related hypersensitivity reaction [Unknown]
  - Vision blurred [Unknown]
